FAERS Safety Report 6828537-6 (Version None)
Quarter: 2010Q3

REPORT INFORMATION
  Report Type: 
  Country: None (occurrence: None)
  Receive Date: 20100709
  Receipt Date: 20070213
  Transmission Date: 20110219
  Serious: No
  Sender: FDA-Public Use
  Company Number: US-PFIZER INC-2007012462

PATIENT
  Age: 45 Year
  Sex: Male

DRUGS (6)
  1. CHANTIX [Suspect]
     Indication: SMOKING CESSATION THERAPY
     Route: 048
  2. ACETAMINOPHEN AND HYDROCODONE BITARTRATE [Concomitant]
     Route: 048
  3. TOPAMAX [Concomitant]
     Route: 048
  4. LEVOTHYROXINE SODIUM [Concomitant]
     Indication: THYROID DISORDER
     Route: 048
  5. TIZANIDINE HCL [Concomitant]
     Indication: PAIN IN EXTREMITY
     Route: 048
  6. TIZANIDINE HCL [Concomitant]
     Indication: SLEEP DISORDER

REACTIONS (6)
  - ANXIETY [None]
  - APATHY [None]
  - DYSGEUSIA [None]
  - FATIGUE [None]
  - SOMNOLENCE [None]
  - STRESS [None]
